FAERS Safety Report 7755212-6 (Version None)
Quarter: 2011Q3

REPORT INFORMATION
  Report Type: 
  Country: None (occurrence: None)
  Receive Date: 20110913
  Receipt Date: 20110830
  Transmission Date: 20111222
  Serious: Yes (Other)
  Sender: FDA-Public Use
  Company Number: DSJ-2011-19387

PATIENT
  Age: 60 Year
  Sex: Male

DRUGS (3)
  1. ACETYLSALICYLIC ACID SRT [Concomitant]
  2. METFORMIN HCL [Concomitant]
  3. BENICAR [Suspect]
     Indication: HYPERTENSION
     Dosage: 40/5 MG (1 IN 1 D), PER ORAL
     Route: 048
     Dates: start: 20110201

REACTIONS (2)
  - HYPERGLYCAEMIA [None]
  - CATARACT [None]
